FAERS Safety Report 8053507-2 (Version None)
Quarter: 2012Q1

REPORT INFORMATION
  Report Type: 
  Country: None (occurrence: None)
  Receive Date: 20120118
  Receipt Date: 20120113
  Transmission Date: 20120608
  Serious: No
  Sender: FDA-Public Use
  Company Number: BR-ABBOTT-11P-020-0720991-00

PATIENT
  Sex: Female
  Weight: 66 kg

DRUGS (8)
  1. OXCARBAZEPINE 300MG+ PHENYTOIN 80MG [Concomitant]
     Indication: EPILEPSY
     Route: 048
  2. TRAMADOL HYDROCHLORIDE [Concomitant]
     Indication: PAIN
     Dates: start: 20110301, end: 20110301
  3. HUMIRA [Suspect]
     Indication: ANKYLOSING SPONDYLITIS
     Dates: start: 20101013, end: 20110319
  4. NORTRIPTYLINE 18MG+MELOXICAM 5MG+PARACETAMOL 300MG+FAMOTIDINE 40MG [Concomitant]
     Indication: ANKYLOSING SPONDYLITIS
     Route: 048
     Dates: start: 20110101
  5. HUMIRA [Suspect]
     Dates: start: 20110417
  6. NORTRIPTYLINE 18MG+MELOXICAM 5MG+PARACETAMOL 300MG+FAMOTIDINE 40MG [Concomitant]
     Indication: FIBROMYALGIA
  7. INDOMETHACIN 25MG+TENOXICAM 5MG+CODEIN 10MG+ FAMOTIDINE 40MG [Concomitant]
     Indication: PAIN
     Route: 048
  8. PHENYTOIN 80MG + ATENOLOL 20MG [Concomitant]
     Indication: EPILEPSY
     Route: 048

REACTIONS (15)
  - INJECTION SITE PAIN [None]
  - PAIN [None]
  - HEART RATE INCREASED [None]
  - ANKYLOSING SPONDYLITIS [None]
  - PHARYNGITIS [None]
  - DYSPNOEA [None]
  - HYPERTENSION [None]
  - FATIGUE [None]
  - INJECTION SITE SWELLING [None]
  - FIBROMYALGIA [None]
  - COUGH [None]
  - INJECTION SITE ERYTHEMA [None]
  - BRONCHITIS [None]
  - SINUSITIS [None]
  - INJECTION SITE HYPERSENSITIVITY [None]
